FAERS Safety Report 20817572 (Version 4)
Quarter: 2023Q1

REPORT INFORMATION
  Report Type: Spontaneous
  Country: US (occurrence: US)
  Receive Date: 20220512
  Receipt Date: 20230213
  Transmission Date: 20230418
  Serious: No
  Sender: FDA-Public Use
  Company Number: US-PFIZER INC-202200582306

PATIENT
  Age: 76 Year
  Sex: Female

DRUGS (4)
  1. PREMARIN [Suspect]
     Active Substance: ESTROGENS, CONJUGATED
     Dosage: UNK (AS NEEDED/REFILL 4, 1 PER DAY)
  2. PREMARIN [Suspect]
     Active Substance: ESTROGENS, CONJUGATED
     Dosage: 0.5 G, 2X/WEEK ((0.5 GM VAGINALLY 2 X WEEKS REFILLS X 4))
     Route: 067
  3. PREMARIN [Suspect]
     Active Substance: ESTROGENS, CONJUGATED
     Dosage: UNK (QUANTITY FOR 90 DAYS: 2 X DAILY TIMES 4 REFILLS)
  4. PREMARIN [Suspect]
     Active Substance: ESTROGENS, CONJUGATED
     Dosage: 0.5 GRAM VAGINALLY 2 - 3 TIMES PER WEEK
     Route: 067

REACTIONS (2)
  - Visual impairment [Unknown]
  - Off label use [Unknown]
